FAERS Safety Report 7224177-8 (Version None)
Quarter: 2011Q1

REPORT INFORMATION
  Report Type: 
  Country: None (occurrence: None)
  Receive Date: 20110113
  Receipt Date: 20110104
  Transmission Date: 20110831
  Serious: Yes (Hospitalization, Other)
  Sender: FDA-Public Use
  Company Number: IE-BAXTER-2011BH000171

PATIENT
  Age: 67 Year
  Sex: Male

DRUGS (2)
  1. GAMMAGARD LIQUID [Suspect]
     Route: 042
     Dates: start: 20100101
  2. GAMMAGARD LIQUID [Suspect]
     Indication: IDIOPATHIC THROMBOCYTOPENIC PURPURA
     Route: 042
     Dates: start: 20101118, end: 20101118

REACTIONS (3)
  - CHILLS [None]
  - ACUTE MYOCARDIAL INFARCTION [None]
  - C-REACTIVE PROTEIN INCREASED [None]
